FAERS Safety Report 6306572-4 (Version None)
Quarter: 2009Q3

REPORT INFORMATION
  Report Type: 
  Country: None (occurrence: None)
  Receive Date: 20090812
  Receipt Date: 20090804
  Transmission Date: 20100115
  Serious: Yes (Hospitalization)
  Sender: FDA-Public Use
  Company Number: A0786586A

PATIENT
  Sex: Male

DRUGS (3)
  1. ADVAIR HFA [Suspect]
     Indication: DRUG USE FOR UNKNOWN INDICATION
     Route: 055
  2. SEREVENT [Suspect]
     Indication: DRUG USE FOR UNKNOWN INDICATION
     Route: 055
  3. ALBUTEROL [Concomitant]

REACTIONS (7)
  - ARRHYTHMIA [None]
  - ASTHMA [None]
  - BRADYCARDIA [None]
  - DYSPNOEA [None]
  - SLEEP APNOEA SYNDROME [None]
  - SUPRAVENTRICULAR TACHYCARDIA [None]
  - VENTRICULAR DYSFUNCTION [None]
